FAERS Safety Report 4893048-4 (Version None)
Quarter: 2005Q4

REPORT INFORMATION
  Report Type: 
  Country: None (occurrence: None)
  Receive Date: 20051223
  Receipt Date: 20051121
  Transmission Date: 20060501
  Serious: Yes (Other)
  Sender: FDA-Public Use
  Company Number: 218150

PATIENT
  Age: 85 Year
  Sex: Male

DRUGS (5)
  1. AVASTIN [Suspect]
     Indication: PANCREATIC CARCINOMA
  2. FLUOROURACIL [Suspect]
     Indication: PANCREATIC CARCINOMA
  3. LEUCOVORIN CALCIUM [Concomitant]
  4. GEMZAR [Concomitant]
  5. CISPLATIN [Concomitant]

REACTIONS (1)
  - SKIN EXFOLIATION [None]
